FAERS Safety Report 4385107-X (Version None)
Quarter: 2004Q2

REPORT INFORMATION
  Report Type: 
  Country: None (occurrence: None)
  Receive Date: 20040624
  Receipt Date: 20040624
  Transmission Date: 20050107
  Serious: Yes (Hospitalization, Disabling)
  Sender: FDA-Public Use
  Company Number: None

PATIENT
  Age: 44 Year
  Sex: Male
  Weight: 70.3075 kg

DRUGS (2)
  1. PRAVACHOL [Suspect]
     Indication: HYPERCHOLESTEROLAEMIA
     Dosage: 40 MG DAY ORAL
     Route: 048
  2. PRAVACHOL [Suspect]
     Indication: HYPERLIPIDAEMIA
     Dosage: 40 MG DAY ORAL
     Route: 048

REACTIONS (13)
  - BUTTOCK PAIN [None]
  - FRACTURED COCCYX [None]
  - GROIN PAIN [None]
  - HYPOAESTHESIA [None]
  - MUSCLE DISORDER [None]
  - NERVE COMPRESSION [None]
  - OEDEMA PERIPHERAL [None]
  - PAIN [None]
  - PAIN IN EXTREMITY [None]
  - PARAESTHESIA [None]
  - PHARMACEUTICAL PRODUCT COMPLAINT [None]
  - SCIATICA [None]
  - THROMBOPHLEBITIS [None]
